FAERS Safety Report 6052629-5 (Version None)
Quarter: 2009Q1

REPORT INFORMATION
  Report Type: 
  Country: None (occurrence: None)
  Receive Date: 20090127
  Receipt Date: 20090120
  Transmission Date: 20090719
  Serious: No
  Sender: FDA-Public Use
  Company Number: US-BAYER-200829439NA

PATIENT
  Age: 41 Year
  Sex: Female

DRUGS (4)
  1. BETASERON [Suspect]
     Indication: DRUG USE FOR UNKNOWN INDICATION
     Dates: start: 19950501, end: 19950101
  2. AVONEX [Concomitant]
     Dates: start: 19960901, end: 19970101
  3. ZANAFLEX [Concomitant]
  4. ANTISPASMODIC [Concomitant]

REACTIONS (1)
  - INJECTION SITE NECROSIS [None]
